FAERS Safety Report 10921826 (Version 1)
Quarter: 2015Q1

REPORT INFORMATION
  Report Type: Spontaneous
  Country: US (occurrence: US)
  Receive Date: 20150317
  Receipt Date: 20150317
  Transmission Date: 20150721
  Serious: Yes (Hospitalization)
  Sender: FDA-Public Use
  Company Number: US-TEVA-547057USA

PATIENT
  Age: 18 Year
  Sex: Male

DRUGS (1)
  1. CLARAVIS [Suspect]
     Active Substance: ISOTRETINOIN
     Dates: start: 20150119, end: 20150219

REACTIONS (1)
  - Gait disturbance [Unknown]

NARRATIVE: CASE EVENT DATE: 201503
